FAERS Safety Report 9950872 (Version 1)
Quarter: 2014Q1

REPORT INFORMATION
  Report Type: Report from Study
  Country: US (occurrence: US)
  Receive Date: 20140304
  Receipt Date: 20140304
  Transmission Date: 20141002
  Serious: No
  Sender: FDA-Public Use
  Company Number: US-ABBVIE-13P-163-1065613-00

PATIENT
  Age: 61 Year
  Sex: Female

DRUGS (3)
  1. HUMIRA [Suspect]
     Indication: PSORIASIS
     Route: 058
     Dates: start: 201201
  2. PREMARIN [Concomitant]
     Indication: PRODUCT USED FOR UNKNOWN INDICATION
  3. SYNTHROID [Concomitant]
     Indication: PRODUCT USED FOR UNKNOWN INDICATION

REACTIONS (4)
  - Dizziness [Unknown]
  - Arthralgia [Unknown]
  - Musculoskeletal stiffness [Unknown]
  - Injection site reaction [Unknown]
